FAERS Safety Report 4617963-1 (Version None)
Quarter: 2005Q1

REPORT INFORMATION
  Report Type: 
  Country: None (occurrence: None)
  Receive Date: 20050322
  Receipt Date: 20050315
  Transmission Date: 20050727
  Serious: Yes (Hospitalization)
  Sender: FDA-Public Use
  Company Number: 2004GB01788

PATIENT
  Age: 62 Year
  Sex: Male

DRUGS (9)
  1. CRESTOR [Suspect]
     Indication: BLOOD CHOLESTEROL INCREASED
     Dosage: 10 MG DAILY PO
     Route: 048
     Dates: start: 20031103
  2. CRESTOR [Suspect]
     Indication: BLOOD TRIGLYCERIDES INCREASED
     Dosage: 10 MG DAILY PO
     Route: 048
     Dates: start: 20031103
  3. CRESTOR [Suspect]
     Indication: BLOOD CHOLESTEROL INCREASED
     Dosage: 20 MG DAILY PO
     Route: 048
     Dates: end: 20040408
  4. CRESTOR [Suspect]
     Indication: BLOOD TRIGLYCERIDES INCREASED
     Dosage: 20 MG DAILY PO
     Route: 048
     Dates: end: 20040408
  5. ALCOHOL [Suspect]
  6. BISOPROLOL FUMARATE [Concomitant]
  7. RHEUMOX [Concomitant]
  8. CO-CODAMOL [Concomitant]
  9. ALLOPURINOL [Concomitant]

REACTIONS (6)
  - BLOOD ALCOHOL INCREASED [None]
  - BLOOD CHOLESTEROL INCREASED [None]
  - BLOOD TRIGLYCERIDES INCREASED [None]
  - DYSPNOEA [None]
  - PANIC ATTACK [None]
  - RENAL FAILURE ACUTE [None]
